FAERS Safety Report 14970068 (Version 1)
Quarter: 2018Q2

REPORT INFORMATION
  Report Type: Spontaneous
  Country: US (occurrence: US)
  Receive Date: 20180530
  Receipt Date: 20180530
  Transmission Date: 20180711
  Serious: No
  Sender: FDA-Public Use
  Company Number: US-KADMON PHARMACEUTICALS, LLC-KAD201708-000908

PATIENT
  Age: 59 Year
  Sex: Female

DRUGS (4)
  1. RIBASPHERE [Suspect]
     Active Substance: RIBAVIRIN
     Dates: start: 20120515
  2. RIBASPHERE [Suspect]
     Active Substance: RIBAVIRIN
     Indication: CHRONIC HEPATITIS C
  3. PEG-INTERFERON ALFA 2A [Suspect]
     Active Substance: PEGINTERFERON ALFA-2A
     Indication: CHRONIC HEPATITIS C
     Dates: end: 20120820
  4. RIBASPHERE [Suspect]
     Active Substance: RIBAVIRIN
     Dates: start: 201208, end: 20120820

REACTIONS (14)
  - Constipation [Unknown]
  - Abdominal pain upper [Unknown]
  - Full blood count abnormal [Unknown]
  - Chromaturia [Recovered/Resolved]
  - Balance disorder [Unknown]
  - Diarrhoea [Recovering/Resolving]
  - Arthralgia [Unknown]
  - Pruritus [Unknown]
  - Sleep disorder [Recovering/Resolving]
  - Dizziness [Unknown]
  - Blood calcium decreased [Unknown]
  - Nausea [Recovered/Resolved]
  - Syncope [Unknown]
  - Haemoglobin decreased [Unknown]

NARRATIVE: CASE EVENT DATE: 20120315
